FAERS Safety Report 25300435 (Version 1)
Quarter: 2025Q2

REPORT INFORMATION
  Report Type: Spontaneous
  Country: CN (occurrence: CN)
  Receive Date: 20250512
  Receipt Date: 20250512
  Transmission Date: 20250717
  Serious: Yes (Other)
  Sender: MERCK SHARP & DOHME LLC
  Company Number: CN-009507513-2282647

PATIENT
  Age: 66 Year
  Sex: Male

DRUGS (1)
  1. CILASTATIN SODIUM\IMIPENEM [Suspect]
     Active Substance: CILASTATIN SODIUM\IMIPENEM
     Indication: Urinary tract infection
     Dosage: 1G, IVGTT, Q12H
     Route: 041
     Dates: start: 20250221, end: 20250221

REACTIONS (1)
  - Seizure like phenomena [Recovering/Resolving]

NARRATIVE: CASE EVENT DATE: 20250221
